FAERS Safety Report 14900135 (Version 1)
Quarter: 2018Q2

REPORT INFORMATION
  Report Type: Spontaneous
  Country: FR (occurrence: FR)
  Receive Date: 20180516
  Receipt Date: 20180516
  Transmission Date: 20180711
  Serious: Yes (Other)
  Sender: FDA-Public Use
  Company Number: FR-MERCK KGAA-2047889

PATIENT
  Age: 65 Year
  Sex: Female
  Weight: 57 kg

DRUGS (1)
  1. NOVOTHYROX [Suspect]
     Active Substance: LEVOTHYROXINE SODIUM
     Indication: AUTOIMMUNE THYROIDITIS
     Dates: start: 201703, end: 201709

REACTIONS (27)
  - Mental impairment [None]
  - Malaise [None]
  - Abdominal pain upper [None]
  - Self esteem decreased [None]
  - Thyroxine free increased [None]
  - Stress [None]
  - Social avoidant behaviour [None]
  - Anal incontinence [None]
  - Sciatica [Recovering/Resolving]
  - Social problem [None]
  - Sleep disorder [None]
  - Thyroxine increased [None]
  - Monocyte count increased [None]
  - Asthenia [None]
  - Nerve injury [None]
  - Fear [None]
  - Suicidal ideation [None]
  - Blood calcium decreased [None]
  - C-reactive protein increased [None]
  - Hypothyroidism [None]
  - Anorectal discomfort [None]
  - Osteitis [None]
  - Diarrhoea [None]
  - Gastrointestinal motility disorder [None]
  - Red blood cell sedimentation rate increased [None]
  - Osteoporosis [None]
  - Weight decreased [None]

NARRATIVE: CASE EVENT DATE: 2017
